FAERS Safety Report 6089604-0 (Version None)
Quarter: 2009Q1

REPORT INFORMATION
  Report Type: 
  Country: None (occurrence: None)
  Receive Date: 20090224
  Receipt Date: 20090212
  Transmission Date: 20090719
  Serious: Yes (Other)
  Sender: FDA-Public Use
  Company Number: PHHY2008JP32839

PATIENT
  Age: 80 Year
  Sex: Female

DRUGS (5)
  1. LOCHOL [Suspect]
     Dosage: 20 MG, QD
     Route: 048
  2. HOCHUUEKKITOU [Interacting]
     Route: 048
  3. NORVASC [Concomitant]
     Route: 048
  4. DOGMATYL [Concomitant]
  5. ALFAROL [Concomitant]
     Route: 048

REACTIONS (3)
  - BLOOD CREATINE PHOSPHOKINASE INCREASED [None]
  - DRUG INTERACTION [None]
  - MUSCULAR WEAKNESS [None]
